FAERS Safety Report 18538814 (Version 1)
Quarter: 2020Q4

REPORT INFORMATION
  Report Type: Spontaneous
  Country: ES (occurrence: ES)
  Receive Date: 20201124
  Receipt Date: 20201124
  Transmission Date: 20210114
  Serious: Yes (Hospitalization)
  Sender: FDA-Public Use
  Company Number: ES-ACCORD-208843

PATIENT
  Age: 74 Year
  Sex: Female

DRUGS (10)
  1. PARACETAMOL/TRAMADOL [Interacting]
     Active Substance: ACETAMINOPHEN\TRAMADOL
     Indication: SCIATICA
     Dosage: STRENGTH: 75 MG / 650 MG
     Route: 048
     Dates: start: 20201027
  2. PREGABALIN. [Concomitant]
     Active Substance: PREGABALIN
     Indication: SCIATICA
     Route: 048
     Dates: start: 20201027
  3. HYDROCHLOROTHIAZIDE/RAMIPRIL [Concomitant]
     Active Substance: HYDROCHLOROTHIAZIDE\RAMIPRIL
     Indication: DYSPEPSIA
     Dosage: STRENGTH: 5 MG / 25 MG
     Route: 048
     Dates: start: 20190710
  4. ATENOLOL/ATENOLOL HYDROCHLORIDE [Concomitant]
     Active Substance: ATENOLOL HYDROCHLORIDE
     Indication: HYPERTENSION
     Route: 048
     Dates: start: 20180920
  5. ATORVASTATIN/ACETYLSALICYLIC ACID/RAMIPRIL [Concomitant]
     Indication: DYSPEPSIA
     Dosage: STRENGTH: 20 MG / 100 MG / 10?MG
     Route: 048
     Dates: start: 20190709
  6. EXELON [Concomitant]
     Active Substance: RIVASTIGMINE TARTRATE
     Indication: DEMENTIA ALZHEIMER^S TYPE
     Route: 062
     Dates: start: 20201029
  7. SERTRALINE [Suspect]
     Active Substance: SERTRALINE HYDROCHLORIDE
     Indication: OSTEOARTHRITIS
     Route: 048
     Dates: start: 20201028
  8. CALCIUM CARBONATE/COLECALCIFEROL/SODIUM [Concomitant]
     Indication: OSTEOPOROSIS
     Dosage: STRENGTH: 1,500 MG
     Route: 048
     Dates: start: 20180109
  9. OMEPRAZOLE. [Concomitant]
     Active Substance: OMEPRAZOLE
     Indication: OSTEOARTHRITIS
     Route: 048
     Dates: start: 20170803
  10. NAPROXEN. [Concomitant]
     Active Substance: NAPROXEN
     Indication: SCIATICA
     Route: 048
     Dates: start: 20201027

REACTIONS (3)
  - Off label use [Unknown]
  - Drug interaction [Unknown]
  - Disorientation [Recovering/Resolving]

NARRATIVE: CASE EVENT DATE: 20201102
